FAERS Safety Report 5890192-X (Version None)
Quarter: 2008Q3

REPORT INFORMATION
  Report Type: 
  Country: None (occurrence: None)
  Receive Date: 20080919
  Receipt Date: 20080909
  Transmission Date: 20090109
  Serious: Yes (Hospitalization, Other)
  Sender: FDA-Public Use
  Company Number: US-PFIZER INC-2008075599

PATIENT
  Sex: Female

DRUGS (3)
  1. XANAX [Suspect]
  2. NALTREXONE HYDROCHLORIDE [Suspect]
     Indication: ALCOHOLISM
     Dosage: DAILY DOSE:380MG
     Route: 030
     Dates: start: 20080101
  3. FIORICET [Suspect]

REACTIONS (3)
  - ALCOHOL ABUSE [None]
  - ALCOHOLISM [None]
  - SUBSTANCE ABUSE [None]
